FAERS Safety Report 19060493 (Version 1)
Quarter: 2021Q1

REPORT INFORMATION
  Report Type: Other
  Country: GB (occurrence: GB)
  Receive Date: 20210326
  Receipt Date: 20210326
  Transmission Date: 20210420
  Serious: Yes (Death)
  Sender: FDA-Public Use
  Company Number: GB-CELLTRION INC.-2021GB003847

PATIENT

DRUGS (19)
  1. TRASTUZUMAB (UNKNOWN) [Suspect]
     Active Substance: TRASTUZUMAB
     Indication: BREAST CANCER METASTATIC
     Dosage: 430.5 MG (LOADING DOSE)
     Route: 042
     Dates: start: 20150615, end: 20150615
  2. PERTUZUMAB. [Suspect]
     Active Substance: PERTUZUMAB
     Dosage: 420 MG EVERY 3 WEEKS (MAINTENANCE DOSE)
     Route: 042
     Dates: start: 20150707
  3. BREWER^S YEAST [Concomitant]
     Dosage: 3600 MG IN 0.33 DAY
     Route: 048
  4. DEXAMETHASONE. [Concomitant]
     Active Substance: DEXAMETHASONE
     Dosage: 8 MG IN 0.5 DAY
     Route: 048
     Dates: start: 20150615, end: 20150617
  5. DENOSUMAB [Concomitant]
     Active Substance: DENOSUMAB
     Dosage: 120 MG
     Route: 058
     Dates: start: 20171006, end: 20180202
  6. ALOE VERA [Concomitant]
     Active Substance: ALOE VERA LEAF
     Dosage: 25 ML IN 1 DAY
     Route: 048
  7. TRASTUZUMAB (UNKNOWN) [Suspect]
     Active Substance: TRASTUZUMAB
     Dosage: 304.5 MG EVERY 3 WEEKS (MAINTENANCE DOSE)
     Route: 042
     Dates: start: 20150707
  8. TRASTUZUMAB EMTANSINE [Suspect]
     Active Substance: ADO-TRASTUZUMAB EMTANSINE
     Indication: BREAST CANCER METASTATIC
     Dosage: 200 MG EVERY 3 WEEKS
     Route: 042
     Dates: start: 20161213, end: 20170711
  9. CAPECITABINE. [Suspect]
     Active Substance: CAPECITABINE
     Dosage: 1500 MG EVERY 3 WEEKS
     Route: 048
     Dates: start: 20171221
  10. DOCETAXEL. [Suspect]
     Active Substance: DOCETAXEL
     Indication: BREAST CANCER METASTATIC
     Dosage: 120 MG IN 1 DAY
     Route: 042
     Dates: start: 20150616, end: 20150616
  11. DOCETAXEL. [Suspect]
     Active Substance: DOCETAXEL
     Dosage: 90 MG IN 1 DAY
     Route: 042
     Dates: start: 20150707
  12. CAPECITABINE. [Suspect]
     Active Substance: CAPECITABINE
     Indication: BREAST CANCER METASTATIC
     Dosage: 2000 MG
     Route: 048
     Dates: start: 20170918
  13. METOCLOPRAMIDE. [Concomitant]
     Active Substance: METOCLOPRAMIDE
     Dosage: 10 MG
     Route: 048
     Dates: start: 20150615, end: 20151118
  14. DEXAMETHASONE. [Concomitant]
     Active Substance: DEXAMETHASONE
     Dosage: 20 MG
     Route: 042
     Dates: start: 20150707
  15. LACTULOSE. [Concomitant]
     Active Substance: LACTULOSE
     Indication: CONSTIPATION
     Dosage: 20 ML IN 2 DAYS
     Route: 048
     Dates: start: 20180927, end: 20180928
  16. FILGRASTIM [Concomitant]
     Active Substance: FILGRASTIM
     Dosage: 300 UG IN 1 DAY
     Route: 058
     Dates: start: 20151123, end: 20151129
  17. SELENIUM [Concomitant]
     Active Substance: SELENIUM
     Dosage: 55 UG IN 1 DAY
     Route: 048
  18. PERTUZUMAB. [Suspect]
     Active Substance: PERTUZUMAB
     Indication: BREAST CANCER METASTATIC
     Dosage: 840 MG (LOADING DOSE)
     Route: 042
     Dates: start: 20150615, end: 20150615
  19. ZOMETA [Concomitant]
     Active Substance: ZOLEDRONIC ACID
     Dosage: 4 MG IN 0.33 MONTH
     Route: 042
     Dates: start: 20180206

REACTIONS (3)
  - Peripheral sensory neuropathy [Recovered/Resolved]
  - Disease progression [Fatal]
  - Peripheral sensory neuropathy [Recovered/Resolved with Sequelae]

NARRATIVE: CASE EVENT DATE: 201601
